FAERS Safety Report 6301262-6 (Version None)
Quarter: 2009Q3

REPORT INFORMATION
  Report Type: 
  Country: None (occurrence: None)
  Receive Date: 20090806
  Receipt Date: 20090806
  Transmission Date: 20100115
  Serious: Yes (Other)
  Sender: FDA-Public Use
  Company Number: None

PATIENT
  Age: 53 Year

DRUGS (2)
  1. XOPENEX HFA [Suspect]
     Indication: ASTHMA
     Dosage: 45 MCG 2 INHALATION
     Route: 055
     Dates: start: 20090617
  2. XOPENEX HFA [Suspect]
     Indication: CHRONIC OBSTRUCTIVE PULMONARY DISEASE
     Dosage: 45 MCG 2 INHALATION
     Route: 055
     Dates: start: 20090617

REACTIONS (6)
  - ANGER [None]
  - ANXIETY [None]
  - FEAR [None]
  - HALLUCINATION [None]
  - MOBILITY DECREASED [None]
  - NO THERAPEUTIC RESPONSE [None]
